FAERS Safety Report 22268948 (Version 1)
Quarter: 2023Q2

REPORT INFORMATION
  Report Type: Spontaneous
  Country: BR (occurrence: BR)
  Receive Date: 20230501
  Receipt Date: 20230501
  Transmission Date: 20230721
  Serious: Yes (Hospitalization, Other)
  Sender: FDA-Public Use
  Company Number: BR-BoehringerIngelheim-2023-BI-233618

PATIENT
  Age: 49 Year
  Sex: Female
  Weight: 43 kg

DRUGS (18)
  1. OLODATEROL HYDROCHLORIDE\TIOTROPIUM BROMIDE MONOHYDRATE [Suspect]
     Active Substance: OLODATEROL HYDROCHLORIDE\TIOTROPIUM BROMIDE MONOHYDRATE
     Indication: Chronic obstructive pulmonary disease
     Dosage: SPIOLTO 2.5MCG/2.5MCG
     Route: 055
     Dates: start: 20230422
  2. OLODATEROL HYDROCHLORIDE\TIOTROPIUM BROMIDE MONOHYDRATE [Suspect]
     Active Substance: OLODATEROL HYDROCHLORIDE\TIOTROPIUM BROMIDE MONOHYDRATE
     Indication: Emphysema
  3. SPIRIVA RESPIMAT [Suspect]
     Active Substance: TIOTROPIUM BROMIDE
     Indication: Chronic obstructive pulmonary disease
     Dosage: SPIRIVA RESPIMAT 2,5MCG - TWO PUFFS IN A ROLL, BY THE MORNING
     Route: 055
     Dates: start: 2010, end: 20230421
  4. SPIRIVA RESPIMAT [Suspect]
     Active Substance: TIOTROPIUM BROMIDE
     Indication: Emphysema
  5. PREDNISONE [Suspect]
     Active Substance: PREDNISONE
     Indication: Product used for unknown indication
     Dosage: SPORADIC USE
  6. Alenia [Concomitant]
     Indication: Chronic obstructive pulmonary disease
     Dates: start: 2010, end: 20230421
  7. Alenia [Concomitant]
     Indication: Emphysema
  8. BUDESONIDE [Concomitant]
     Active Substance: BUDESONIDE
     Indication: Chronic obstructive pulmonary disease
     Dates: start: 2010
  9. BUDESONIDE [Concomitant]
     Active Substance: BUDESONIDE
     Indication: Emphysema
  10. AZITHROMYCIN DIHYDRATE [Concomitant]
     Active Substance: AZITHROMYCIN DIHYDRATE
     Indication: Lung disorder
     Dosage: AZITROMICINA 500MG (USED MONDAY, WEDNESDAY AND FRIDAY)
     Dates: start: 202211
  11. QUETIAPINE [Concomitant]
     Active Substance: QUETIAPINE
     Indication: Emotional disorder
     Dosage: QUETIAPINA TABLET 25MG - 25MG IN THE MORNING AND 25MG AT NIGHT
     Route: 048
     Dates: start: 2023
  12. QUETIAPINE [Concomitant]
     Active Substance: QUETIAPINE
     Indication: Anxiety
  13. LEXOPAM [Concomitant]
     Indication: Emotional disorder
     Dosage: LEXOPAM - 100MG BY THE MORNING AND 9MG AT NIGHT, TABLET
     Route: 048
  14. LEXOPAM [Concomitant]
     Indication: Anxiety
     Dosage: LEXOPAM - 100MG BY THE MORNING AND 9MG AT NIGHT, TABLET
     Route: 048
  15. SERTRALINE [Concomitant]
     Active Substance: SERTRALINE HYDROCHLORIDE
     Indication: Emotional disorder
     Route: 048
  16. SERTRALINE [Concomitant]
     Active Substance: SERTRALINE HYDROCHLORIDE
     Indication: Anxiety
  17. DIAZEPAM [Concomitant]
     Active Substance: DIAZEPAM
     Indication: Emotional disorder
     Dosage: DIAZEPAM 5MG, TABLET, USED AS NEEDED.
     Route: 048
  18. DIAZEPAM [Concomitant]
     Active Substance: DIAZEPAM
     Indication: Anxiety

REACTIONS (11)
  - Coma [Unknown]
  - Secretion discharge [Unknown]
  - Cough [Unknown]
  - Dizziness [Unknown]
  - Fatigue [Unknown]
  - Lung disorder [Unknown]
  - Chest discomfort [Unknown]
  - Bronchospasm [Unknown]
  - Blood cholesterol increased [Not Recovered/Not Resolved]
  - Hepatic steatosis [Not Recovered/Not Resolved]
  - Pericardial effusion [Unknown]

NARRATIVE: CASE EVENT DATE: 20100101
